FAERS Safety Report 9962790 (Version 2)
Quarter: 2014Q1

REPORT INFORMATION
  Report Type: Report from Study
  Country: US (occurrence: US)
  Receive Date: 20140305
  Receipt Date: 20140305
  Transmission Date: 20141002
  Serious: Yes (Other)
  Sender: FDA-Public Use
  Company Number: US-ABBVIE-13P-163-1075983-00

PATIENT
  Age: 62 Year
  Sex: Female
  Weight: 49.03 kg

DRUGS (1)
  1. HUMIRA [Suspect]
     Indication: RHEUMATOID ARTHRITIS
     Dates: start: 201204

REACTIONS (3)
  - Surgery [Unknown]
  - Wrong technique in drug usage process [Recovered/Resolved]
  - Local swelling [Not Recovered/Not Resolved]
